FAERS Safety Report 8025051 (Version 2)
Quarter: 2015Q2

REPORT INFORMATION
  Report Type: Report from Study
  Country: RO (occurrence: RO)
  Receive Date: 20110707
  Receipt Date: 20150624
  Transmission Date: 20150821
  Serious: Yes (Other)
  Sender: FDA-Public Use
  Company Number: RO-ROCHE-760066

PATIENT
  Age: 33 Year
  Sex: Male
  Weight: 100 kg

DRUGS (10)
  1. OSELTAMIVIR [Suspect]
     Active Substance: OSELTAMIVIR
     Indication: INFLUENZA
     Dosage: DATE OF LAST DOSE PRIOR TO SAE: 13 FEBRUARY 2011
     Route: 042
     Dates: start: 20110211, end: 20110215
  2. NACL .9% [Concomitant]
     Route: 065
     Dates: start: 20110210, end: 20110210
  3. GLUCOSE [Concomitant]
     Active Substance: DEXTROSE
     Route: 065
     Dates: start: 20110210, end: 20110210
  4. ACETAMINOPHEN. [Concomitant]
     Active Substance: ACETAMINOPHEN
     Route: 065
  5. SALBUTAMOL AEROSOL [Concomitant]
     Active Substance: ALBUTEROL
     Dosage: SALBUTAMOL AEROSOL SPRAY
     Route: 065
  6. GLUCOSE [Concomitant]
     Active Substance: DEXTROSE
     Route: 065
  7. SALBUTAMOL AEROSOL [Concomitant]
     Active Substance: ALBUTEROL
     Route: 065
  8. BROMHEXIN [Concomitant]
     Active Substance: BROMHEXINE
     Route: 065
  9. METAMIZOL [Concomitant]
     Active Substance: METAMIZOLE SODIUM
     Dosage: METAMIZOL SODIC
     Route: 065
  10. DICLOFENAC [Concomitant]
     Active Substance: DICLOFENAC
     Route: 065

REACTIONS (1)
  - Sinus bradycardia [Recovered/Resolved]

NARRATIVE: CASE EVENT DATE: 20110213
